FAERS Safety Report 4810128-X (Version None)
Quarter: 2005Q4

REPORT INFORMATION
  Report Type: 
  Country: None (occurrence: None)
  Receive Date: 20051024
  Receipt Date: 20051010
  Transmission Date: 20060501
  Serious: Yes (Other)
  Sender: FDA-Public Use
  Company Number: 2005RR-00917

PATIENT
  Age: 65 Year
  Sex: Female

DRUGS (7)
  1. SIMVASTATIN [Suspect]
     Indication: HYPERLIPIDAEMIA
     Dosage: 80 MG, ORAL
     Route: 048
     Dates: end: 20050519
  2. DICLOFENAC SODIUM [Suspect]
     Indication: PAIN
     Dosage: ORAL
     Route: 048
     Dates: end: 20050519
  3. LISINOPRIL [Suspect]
     Dosage: 20 MG, ORAL
     Route: 048
     Dates: end: 20050519
  4. FUROSEMIDE [Suspect]
     Dates: end: 20050519
  5. CLOPIDOGREL BISULFATE [Concomitant]
  6. ESOMEPRAZOLE [Concomitant]
  7. ALLOPURINOL [Concomitant]

REACTIONS (7)
  - ALANINE AMINOTRANSFERASE INCREASED [None]
  - ASPARTATE AMINOTRANSFERASE INCREASED [None]
  - BLOOD ALKALINE PHOSPHATASE INCREASED [None]
  - CARDIAC ARREST [None]
  - DEHYDRATION [None]
  - RENAL FAILURE ACUTE [None]
  - RHABDOMYOLYSIS [None]
